FAERS Safety Report 19071709 (Version 1)
Quarter: 2021Q1

REPORT INFORMATION
  Report Type: Spontaneous
  Country: US (occurrence: US)
  Receive Date: 20210330
  Receipt Date: 20210330
  Transmission Date: 20210420
  Serious: Yes (Hospitalization)
  Sender: FDA-Public Use
  Company Number: US-NOVOPROD-797295

PATIENT
  Sex: Female

DRUGS (2)
  1. LEVEMIR [Suspect]
     Active Substance: INSULIN DETEMIR
     Indication: PRODUCT USED FOR UNKNOWN INDICATION
     Dosage: (14 UNITES AT BEDTIME) 14 IU, QD
     Route: 065
     Dates: start: 2006
  2. NOVOLOG [Suspect]
     Active Substance: INSULIN ASPART
     Indication: PRODUCT USED FOR UNKNOWN INDICATION
     Dosage: (8 UNITS BREAKFAST 10 UNITS LUNCH AND  8UNITS DINNER)26 IU, QD
     Route: 065
     Dates: start: 2006

REACTIONS (1)
  - Infection [Recovered/Resolved]
